FAERS Safety Report 17740630 (Version 5)
Quarter: 2021Q3

REPORT INFORMATION
  Report Type: Report from Study
  Country: DE (occurrence: DE)
  Receive Date: 20200504
  Receipt Date: 20210728
  Transmission Date: 20211014
  Serious: Yes (Death, Hospitalization)
  Sender: FDA-Public Use
  Company Number: DE-EISAI MEDICAL RESEARCH-EC-2020-073962

PATIENT
  Age: 60 Year
  Sex: Female
  Weight: 62 kg

DRUGS (1)
  1. HALAVEN [Suspect]
     Active Substance: ERIBULIN MESYLATE
     Indication: BREAST CANCER
     Route: 042
     Dates: start: 20200420, end: 20200427

REACTIONS (3)
  - Febrile neutropenia [Not Recovered/Not Resolved]
  - Malignant neoplasm progression [Fatal]
  - Leukopenia [Fatal]

NARRATIVE: CASE EVENT DATE: 20200427
